FAERS Safety Report 13740483 (Version 3)
Quarter: 2017Q3

REPORT INFORMATION
  Report Type: Spontaneous
  Country: DE (occurrence: DE)
  Receive Date: 20170711
  Receipt Date: 20170808
  Transmission Date: 20171127
  Serious: Yes (Other)
  Sender: FDA-Public Use
  Company Number: DE-OCTA-GAM15217DE

PATIENT
  Age: 33 Year
  Sex: Male
  Weight: 91 kg

DRUGS (1)
  1. OCTAGAM IMMUNE GLOBULIN (HUMAN) [Suspect]
     Active Substance: HUMAN IMMUNOGLOBULIN G
     Indication: SELECTIVE IGG SUBCLASS DEFICIENCY
     Dosage: EVERY 3 WEEKS
     Route: 042
     Dates: start: 20170220, end: 20170528

REACTIONS (9)
  - Alanine aminotransferase increased [Not Recovered/Not Resolved]
  - Serum ferritin increased [Unknown]
  - Aspartate aminotransferase increased [Not Recovered/Not Resolved]
  - Hepatitis B core antibody positive [Unknown]
  - Suspected transmission of an infectious agent via product [Unknown]
  - Condition aggravated [Not Recovered/Not Resolved]
  - Hepatitis B surface antibody positive [Unknown]
  - Gamma-glutamyltransferase increased [Not Recovered/Not Resolved]
  - Blood alkaline phosphatase increased [Not Recovered/Not Resolved]

NARRATIVE: CASE EVENT DATE: 2017
